FAERS Safety Report 20082686 (Version 2)
Quarter: 2021Q4

REPORT INFORMATION
  Report Type: Spontaneous
  Country: DE (occurrence: DE)
  Receive Date: 20211117
  Receipt Date: 20211123
  Transmission Date: 20220304
  Serious: Yes (Hospitalization)
  Sender: FDA-Public Use
  Company Number: DE-ADRED-07131-01

PATIENT
  Age: 98 Year
  Sex: Female

DRUGS (12)
  1. FENOFIBRATE [Suspect]
     Active Substance: FENOFIBRATE
     Indication: Product used for unknown indication
     Dosage: 160 MILLIGRAM, QD, 160 MG, 1-0-0-0
  2. METAMIZOL                          /06276701/ [Concomitant]
     Dosage: 500 MILLIGRAMY, BEDARF
  3. CORTICORELIN (HUMAN) [Concomitant]
     Dosage: 0.25, 1-0-0-1
  4. FORMOTEROL [Concomitant]
     Active Substance: FORMOTEROL
     Dosage: UNK UNK, QD, 0-0-1-0
  5. MAGNESIUM OXIDE [Concomitant]
     Active Substance: MAGNESIUM OXIDE
     Dosage: 243 MILLIGRAM, QD, 243 MG, 0-1-0-0
  6. SERTRALIN                          /01011401/ [Concomitant]
     Dosage: 50 MILLIGRAM, QD, 50 MG, 1-0-0-0
  7. AMLODIPIN                          /00972401/ [Concomitant]
     Dosage: 5 MILLIGRAM, QD, 5 MG, 1-0-0-0
  8. SODIUM PICOSULFATE [Concomitant]
     Active Substance: SODIUM PICOSULFATE
     Dosage: 1-0-1-0
  9. ACETYLSALICYLIC ACID [Concomitant]
     Dosage: 100 MILLIGRAM, QD, 100 MG, 1-0-0-0
  10. TORSEMIDE [Concomitant]
     Active Substance: TORSEMIDE
     Dosage: 10 MILLIGRAM, QD, 10 MG, 1-0-0-0
  11. LEVOTHYROXINE SODIUM [Concomitant]
     Active Substance: LEVOTHYROXINE SODIUM
     Dosage: 100 MICROGRAM, QD, 1-0-0-0
  12. METFORMIN [Concomitant]
     Active Substance: METFORMIN HYDROCHLORIDE
     Dosage: 500 MILLIGRAM, 1-0-1-0

REACTIONS (9)
  - Abdominal distension [Unknown]
  - General physical health deterioration [Unknown]
  - Systemic infection [Unknown]
  - Atrial fibrillation [Unknown]
  - Hyponatraemia [Unknown]
  - Electrocardiogram abnormal [Unknown]
  - Vomiting [Unknown]
  - Abdominal pain [Unknown]
  - Pancreatitis [Unknown]
